FAERS Safety Report 18058750 (Version 1)
Quarter: 2020Q3

REPORT INFORMATION
  Report Type: Spontaneous
  Country: CA (occurrence: CA)
  Receive Date: 20200723
  Receipt Date: 20200723
  Transmission Date: 20201103
  Serious: Yes (Life-Threatening, Hospitalization, Other)
  Sender: FDA-Public Use
  Company Number: CA-ACCORD-191774

PATIENT
  Age: 66 Year
  Sex: Male
  Weight: 82 kg

DRUGS (5)
  1. SUTENT [Suspect]
     Active Substance: SUNITINIB MALATE
     Indication: METASTATIC RENAL CELL CARCINOMA
     Dosage: FREQUENCY: 1 EVERY 1 DAYS
  2. CLONIDINE. [Concomitant]
     Active Substance: CLONIDINE
     Indication: PRODUCT USED FOR UNKNOWN INDICATION
  3. AFINITOR [Suspect]
     Active Substance: EVEROLIMUS
     Indication: METASTATIC RENAL CELL CARCINOMA
     Dosage: FREQUENCY: 1 EVERY 1 DAYS
     Route: 048
  4. RAMIPRIL. [Suspect]
     Active Substance: RAMIPRIL
     Indication: HYPERTENSION
     Dosage: FREQUENCY: 2 EVERY 1 DAYS
  5. PAROXETINE. [Suspect]
     Active Substance: PAROXETINE
     Indication: MOOD ALTERED
     Dosage: FREQUENCY: 1 EVERY 1 DAYS

REACTIONS (5)
  - Angioedema [Unknown]
  - Hypertension [Unknown]
  - Confusional state [Unknown]
  - Dehydration [Unknown]
  - Mucosal inflammation [Unknown]
